FAERS Safety Report 14611590 (Version 1)
Quarter: 2018Q1

REPORT INFORMATION
  Report Type: Other
  Country: IT (occurrence: IT)
  Receive Date: 20180308
  Receipt Date: 20180308
  Transmission Date: 20180509
  Serious: Yes (Death)
  Sender: FDA-Public Use
  Company Number: IT-ACCORD-064246

PATIENT
  Age: 76 Year
  Sex: Male
  Weight: 50 kg

DRUGS (1)
  1. TEMOZOLOMIDE ACCORD [Suspect]
     Active Substance: TEMOZOLOMIDE
     Indication: GLIOBLASTOMA
     Dosage: ALSO RECEIVED AT THE DOSE OF 10 MG (CAPSULE)
     Route: 048
     Dates: start: 20171031, end: 20171215

REACTIONS (8)
  - Dyspnoea at rest [Fatal]
  - Pyrexia [Fatal]
  - Disease progression [Fatal]
  - Petechiae [Fatal]
  - Pulmonary oedema [Fatal]
  - Thrombocytopenia [Fatal]
  - Neutropenia [Fatal]
  - Haematuria [Fatal]

NARRATIVE: CASE EVENT DATE: 20171224
